FAERS Safety Report 18107256 (Version 1)
Quarter: 2020Q3

REPORT INFORMATION
  Report Type: Spontaneous
  Country: IL (occurrence: IL)
  Receive Date: 20200803
  Receipt Date: 20200803
  Transmission Date: 20201103
  Serious: Yes (Death)
  Sender: FDA-Public Use
  Company Number: NVSC2020IL185447

PATIENT
  Age: 82 Year
  Sex: Female

DRUGS (1)
  1. KISQALI [Suspect]
     Active Substance: RIBOCICLIB
     Indication: BREAST CANCER METASTATIC
     Dosage: 600 MG, QD, (ONCE DAILY FOR 3 WEEKS)
     Route: 065

REACTIONS (2)
  - Death [Fatal]
  - Abdominal pain [Not Recovered/Not Resolved]
